FAERS Safety Report 6550774-9 (Version None)
Quarter: 2010Q1

REPORT INFORMATION
  Report Type: 
  Country: None (occurrence: None)
  Receive Date: 20100122
  Receipt Date: 20100122
  Transmission Date: 20100710
  Serious: Yes (Hospitalization)
  Sender: FDA-Public Use
  Company Number: None

PATIENT
  Sex: Male
  Weight: 91 kg

DRUGS (2)
  1. DAUNORUBICIN HCL [Suspect]
     Dosage: 412 MG
  2. TRETINOIN [Suspect]
     Dosage: 1400 MG

REACTIONS (2)
  - CAECITIS [None]
  - INFECTION [None]
